FAERS Safety Report 26204599 (Version 1)
Quarter: 2025Q4

REPORT INFORMATION
  Report Type: Spontaneous
  Country: EU (occurrence: EU)
  Receive Date: 20251227
  Receipt Date: 20251227
  Transmission Date: 20260117
  Serious: Yes (Hospitalization, Other)
  Sender: AUROBINDO
  Company Number: EU-SZ09-GXKR2008DE07124

PATIENT
  Age: 75 Year
  Sex: Male
  Weight: 81.5 kg

DRUGS (27)
  1. GLIMEPIRIDE [Suspect]
     Active Substance: GLIMEPIRIDE
     Indication: Product used for unknown indication
     Dosage: 1 MILLIGRAM, 3 TIMES A DAY (1 MG, TID)
     Route: 065
  2. METFORMIN [Suspect]
     Active Substance: METFORMIN HYDROCHLORIDE
     Indication: Product used for unknown indication
     Dosage: 1000 MILLIGRAM, TWO TIMES A DAY (1000 MG, BID)
     Route: 065
  3. EPOETIN ALFA [Suspect]
     Active Substance: ERYTHROPOIETIN
     Indication: Anaemia
     Dosage: 6000 INTERNATIONAL UNIT, EVERY WEEK (2000 IU, QW3)
     Dates: start: 20080626, end: 20080701
  4. EPOETIN ALFA [Suspect]
     Active Substance: ERYTHROPOIETIN
     Dosage: 6000 INTERNATIONAL UNIT, EVERY WEEK (2000 IU, QW3)
     Dates: start: 20080715
  5. FUROSEMIDE [Concomitant]
     Active Substance: FUROSEMIDE
     Indication: Product used for unknown indication
     Dosage: 40 MILLIGRAM, TWO TIMES A DAY
     Route: 061
  6. FUROSEMIDE [Concomitant]
     Active Substance: FUROSEMIDE
     Dosage: 250 MILLIGRAM, ONCE A DAY (125 MG, BID)
     Route: 061
     Dates: start: 20080610, end: 20080626
  7. ALLOPURINOL [Concomitant]
     Active Substance: ALLOPURINOL
     Indication: Product used for unknown indication
     Dosage: 100 MILLIGRAM, ONCE A DAY,QD
     Route: 065
     Dates: start: 20080610
  8. MIFLONIDE5 [Concomitant]
     Indication: Product used for unknown indication
     Dosage: 400 MICROGRAM (400 ?G, NK)
     Route: 065
  9. MOVICOL [Concomitant]
     Active Substance: POLYETHYLENE GLYCOL 3350\POTASSIUM CHLORIDE\SODIUM BICARBONATE\SODIUM CHLORIDE
     Indication: Product used for unknown indication
     Dosage: NK MG, 1-0-0-0
     Route: 065
  10. PRADAXA [Concomitant]
     Active Substance: DABIGATRAN ETEXILATE MESYLATE
     Indication: Product used for unknown indication
     Dosage: 110 MILLIGRAM, TWO TIMES A DAY
     Route: 065
  11. PANTOPRAZOLE [Concomitant]
     Active Substance: PANTOPRAZOLE
     Indication: Product used for unknown indication
     Dosage: 40 MILLIGRAM, ONCE A DAY, QD
     Route: 065
  12. GLYCOPYRRONIUM\INDACATEROL [Concomitant]
     Active Substance: GLYCOPYRRONIUM\INDACATEROL
     Indication: Product used for unknown indication
     Dosage: 85|43 ?G, NK
     Route: 065
  13. ASPIRIN [Concomitant]
     Active Substance: ASPIRIN
     Indication: Product used for unknown indication
     Dosage: 100 MILLIGRAM, ONCE A DAY
     Route: 065
  14. TAMSULOSIN [Concomitant]
     Active Substance: TAMSULOSIN
     Indication: Product used for unknown indication
     Dosage: 0.4 MILLIGRAM, ONCE A DAY
     Route: 065
  15. CLOPIDOGREL [Concomitant]
     Active Substance: CLOPIDOGREL BISULFATE
     Indication: Coronary artery disease
     Dosage: 75 MILLIGRAM, ONCE A DAY, QD
     Route: 065
  16. RAMIPRIL [Concomitant]
     Active Substance: RAMIPRIL
     Indication: Product used for unknown indication
     Dosage: 2.5 MILLIGRAM, TWO TIMES A DAY
     Route: 065
     Dates: start: 20080610
  17. ASPIRIN [Concomitant]
     Active Substance: ASPIRIN
     Indication: Product used for unknown indication
     Dosage: 300 MILLIGRAM, ONCE A DAY, QD
     Route: 061
     Dates: start: 20080610
  18. TORASEMIDE5 [Concomitant]
     Indication: Product used for unknown indication
     Dosage: 200 MILLIGRAM, ONCE A DAY, QD
     Route: 061
     Dates: start: 20080626
  19. ACTRAPHANE HM5 [Concomitant]
     Indication: Diabetes mellitus
     Dosage: 36-0-18 IU, (30/70) DAILY
     Dates: start: 20080610, end: 20080627
  20. ACTRAPHANE HM5 [Concomitant]
     Dosage: 24-0-10 IU, (30/70) DAILY
     Dates: start: 20080628, end: 20080704
  21. SIMVASTATIN5 [Concomitant]
     Indication: Product used for unknown indication
     Dosage: 40 MILLIGRAM, ONCE A DAY, QD
     Route: 061
     Dates: start: 20080610
  22. REPAGLINIDE5 [Concomitant]
     Indication: Diabetes mellitus
     Dosage: 6 MILLIGRAM, ONCE A DAY (2 MG, TID)
     Route: 061
     Dates: start: 20080610, end: 20080627
  23. REPAGLINIDE5 [Concomitant]
     Dosage: 3 MILLIGRAM, ONCE A DAY
     Route: 061
     Dates: start: 20080628, end: 20080704
  24. OMEPRAZOLE5 [Concomitant]
     Indication: Product used for unknown indication
     Dosage: 20 MILLIGRAM, ONCE A DAY QD
     Route: 061
     Dates: start: 20080610
  25. LONOLOX5 [Concomitant]
     Indication: Product used for unknown indication
     Dosage: 300 MILLIGRAM, ONCE A DAY (100 MG, TID)
     Route: 061
     Dates: start: 20080610, end: 20080611
  26. LONOLOX5 [Concomitant]
     Dosage: 150 MILLIGRAM, ONCE A DAY (50 MG, TID)
     Route: 061
     Dates: start: 20080611, end: 20080729
  27. METOPROLOL [Concomitant]
     Active Substance: METOPROLOL
     Indication: Product used for unknown indication
     Dosage: 190 MILLIGRAM, ONCE A DAY (95 MG, BID)
     Route: 061
     Dates: start: 20080610

REACTIONS (8)
  - Syncope [Recovered/Resolved]
  - Hypoglycaemia [Recovered/Resolved]
  - Dizziness [Unknown]
  - Blood glucose decreased [Recovered/Resolved]
  - Haematoma [Recovered/Resolved]
  - Anaemia [Recovered/Resolved]
  - Hypotension [Recovered/Resolved]
  - Fall [Recovered/Resolved]

NARRATIVE: CASE EVENT DATE: 20080627
